FAERS Safety Report 9205001 (Version 2)
Quarter: 2013Q4

REPORT INFORMATION
  Report Type: Spontaneous
  Country: US (occurrence: US)
  Receive Date: 20130402
  Receipt Date: 20131108
  Transmission Date: 20140711
  Serious: Yes (Hospitalization, Disabling)
  Sender: FDA-Public Use
  Company Number: US-BAYER-2013-039241

PATIENT
  Age: 36 Year
  Sex: Female

DRUGS (13)
  1. YAZ [Suspect]
     Dosage: UNK
     Dates: start: 2007, end: 2010
  2. YASMIN [Suspect]
     Dosage: UNK
     Dates: start: 2007, end: 2010
  3. OCELLA [Suspect]
     Dosage: UNK
     Dates: start: 2007, end: 2010
  4. ZARAH [Suspect]
     Dosage: UNK
     Dates: start: 2007, end: 2010
  5. PREVACID [Concomitant]
     Dosage: UNK
     Dates: start: 20100929
  6. ACIPHEX [Concomitant]
     Dosage: UNK
     Dates: start: 20101016
  7. TRAZODONE [Concomitant]
     Dosage: UNK
     Dates: start: 20101120
  8. AMOXICILLIN [Concomitant]
  9. PROMETHAZINE DM [Concomitant]
  10. LEVAQUIN [Concomitant]
  11. ZOLPIDEM [Concomitant]
  12. BENZONATATE [Concomitant]
  13. HYDROCODONE/ACETAMINOPHEN [Concomitant]

REACTIONS (8)
  - Gallbladder disorder [None]
  - Cholecystitis chronic [None]
  - Injury [None]
  - Pain [None]
  - Emotional distress [None]
  - Anxiety [None]
  - Anhedonia [None]
  - Deformity [None]
